FAERS Safety Report 5264814-0 (Version None)
Quarter: 2007Q1

REPORT INFORMATION
  Report Type: 
  Country: None (occurrence: None)
  Receive Date: 20070314
  Receipt Date: 20070313
  Transmission Date: 20070707
  Serious: Yes (Other)
  Sender: FDA-Public Use
  Company Number: 2007-001706

PATIENT
  Age: 22 Year
  Sex: Male
  Weight: 70.8 kg

DRUGS (11)
  1. FLOLAN [Suspect]
     Dosage: 60NGKM UNKNOWN
     Route: 042
     Dates: start: 20001114
  2. LASIX [Concomitant]
     Dosage: 20MG PER DAY
     Route: 048
  3. ASCORBIC ACID [Concomitant]
     Dosage: 1000MG PER DAY
     Route: 048
  4. ZINC GLUCONATE [Concomitant]
     Dosage: 60MG PER DAY
     Route: 048
  5. TYLENOL [Concomitant]
     Dosage: 500MG AS REQUIRED
     Route: 048
  6. VITAMIN B COMPLEX CAP [Concomitant]
     Dosage: 1CAP PER DAY
     Route: 048
  7. IMODIUM A-D [Concomitant]
     Dosage: 1MG AS REQUIRED
     Route: 048
  8. COUMADIN [Concomitant]
     Dosage: 2MG PER DAY
     Route: 048
  9. LUVOX [Concomitant]
     Dosage: 100MG PER DAY
     Route: 048
  10. NEOSPORIN [Concomitant]
     Route: 061
  11. BACITRACIN + NEOMYCIN + POLYMIXIN [Concomitant]
     Route: 061

REACTIONS (2)
  - CATHETER RELATED COMPLICATION [None]
  - PHARMACEUTICAL PRODUCT COMPLAINT [None]
